FAERS Safety Report 4831145-X (Version None)
Quarter: 2005Q4

REPORT INFORMATION
  Report Type: 
  Country: None (occurrence: None)
  Receive Date: 20051114
  Receipt Date: 20051101
  Transmission Date: 20060501
  Serious: Yes (Other)
  Sender: FDA-Public Use
  Company Number: 2005-CZ-00849

PATIENT
  Age: 46 Year
  Sex: Male

DRUGS (5)
  1. PHENYTOIN [Suspect]
     Dosage: INTRAVENOUS
     Route: 042
  2. AMOXICILLIN AND CLAVULANATE POTASSIUM [Concomitant]
  3. CEFOTAXIME [Concomitant]
  4. PYRIDOXINE HCL [Concomitant]
  5. VALPROATE SODIUM [Concomitant]

REACTIONS (7)
  - HAEMOPHILUS INFECTION [None]
  - LUNG INFILTRATION [None]
  - PAIN IN EXTREMITY [None]
  - PYREXIA [None]
  - RENAL IMPAIRMENT [None]
  - RHABDOMYOLYSIS [None]
  - SPUTUM PURULENT [None]
